FAERS Safety Report 10220063 (Version 2)
Quarter: 2014Q2

REPORT INFORMATION
  Report Type: Spontaneous
  Country: US (occurrence: US)
  Receive Date: 20140605
  Receipt Date: 20140619
  Transmission Date: 20141212
  Serious: No
  Sender: FDA-Public Use
  Company Number: US-GILEAD-2014-0104334

PATIENT
  Sex: Female

DRUGS (4)
  1. LETAIRIS [Suspect]
     Indication: PRODUCT USED FOR UNKNOWN INDICATION
     Dosage: 5 MG, QD
     Route: 065
     Dates: start: 20121119
  2. LETAIRIS [Suspect]
     Dosage: 5 MG, QD
     Dates: start: 20121120
  3. VENTAVIS [Concomitant]
     Route: 065
  4. COUMADIN                           /00014802/ [Concomitant]

REACTIONS (1)
  - Arthropathy [Unknown]
